FAERS Safety Report 11628457 (Version 2)
Quarter: 2015Q4

REPORT INFORMATION
  Report Type: Spontaneous
  Country: JP (occurrence: JP)
  Receive Date: 20151014
  Receipt Date: 20151029
  Transmission Date: 20160304
  Serious: Yes (Death, Other)
  Sender: FDA-Public Use
  Company Number: JP-ASTELLAS-2015JP020522AA

PATIENT
  Sex: Male

DRUGS (1)
  1. XTANDI [Suspect]
     Active Substance: ENZALUTAMIDE
     Indication: PROSTATE CANCER
     Dosage: UNK UNK, UNKNOWN FREQ.
     Route: 048
     Dates: end: 20150508

REACTIONS (2)
  - Drug ineffective [Unknown]
  - Prostate cancer [Fatal]

NARRATIVE: CASE EVENT DATE: 20150927
